FAERS Safety Report 5122137-4 (Version None)
Quarter: 2006Q4

REPORT INFORMATION
  Report Type: 
  Country: None (occurrence: None)
  Receive Date: 20061006
  Receipt Date: 20060928
  Transmission Date: 20070319
  Serious: Yes (Other)
  Sender: FDA-Public Use
  Company Number: US-BOEHRINGER INGELHEIM PHARMACEUTICALS, INC.-2006-BP-11561PF

PATIENT
  Sex: Female
  Weight: 53.52 kg

DRUGS (8)
  1. SPIRIVA [Suspect]
     Indication: CHRONIC OBSTRUCTIVE PULMONARY DISEASE
     Route: 055
     Dates: start: 20040101
  2. LIPITOR [Suspect]
     Indication: BLOOD CHOLESTEROL INCREASED
  3. NEXIUM [Concomitant]
  4. SINGULAIR [Concomitant]
  5. ADVIL [Concomitant]
  6. FLOMAX [Concomitant]
  7. LEVOXAN [Concomitant]
  8. POTASSIUM [Concomitant]

REACTIONS (4)
  - BLOOD CHOLESTEROL [None]
  - HEPATIC NEOPLASM MALIGNANT [None]
  - LUNG NEOPLASM MALIGNANT [None]
  - METASTASES TO LIVER [None]
